FAERS Safety Report 5158675-8 (Version None)
Quarter: 2006Q4

REPORT INFORMATION
  Report Type: 
  Country: None (occurrence: None)
  Receive Date: 20061128
  Receipt Date: 20061116
  Transmission Date: 20070319
  Serious: Yes (Death, Other)
  Sender: FDA-Public Use
  Company Number: DE-ELI_LILLY_AND_COMPANY-DE200611003502

PATIENT
  Age: 50 Year
  Sex: Female

DRUGS (3)
  1. XIGRIS [Suspect]
     Indication: SEPSIS
     Dosage: UNK, UNK
     Route: 042
     Dates: start: 20061106
  2. MERONEM/DEN/ [Concomitant]
  3. BERLOSIN [Concomitant]

REACTIONS (2)
  - PLATELET COUNT DECREASED [None]
  - SEPTIC SHOCK [None]
